FAERS Safety Report 15207105 (Version 1)
Quarter: 2018Q3

REPORT INFORMATION
  Report Type: Report from Study
  Country: CN (occurrence: CN)
  Receive Date: 20180727
  Receipt Date: 20180727
  Transmission Date: 20181010
  Serious: Yes (Hospitalization)
  Sender: FDA-Public Use
  Company Number: CN-UNITED THERAPEUTICS-UNT-2017-005382

PATIENT
  Age: 41 Year
  Sex: Female
  Weight: 48 kg

DRUGS (6)
  1. ORAL TREPROSTINIL [Suspect]
     Active Substance: TREPROSTINIL
     Dosage: 22.5 MG, TOTAL DAILY DOSE
     Route: 048
     Dates: start: 20170327
  2. ORAL TREPROSTINIL [Suspect]
     Active Substance: TREPROSTINIL
     Dosage: 3 MG, TOTAL DAILY DOSE
     Route: 048
     Dates: start: 20170328
  3. ORAL TREPROSTINIL [Suspect]
     Active Substance: TREPROSTINIL
     Dosage: 0.75 MG, TOTAL DAILY DOSE
     Route: 048
     Dates: start: 20170328
  4. ORAL TREPROSTINIL [Suspect]
     Active Substance: TREPROSTINIL
     Dosage: 1.5 MG, TOTAL DAILY DOSE
     Route: 048
     Dates: start: 20170328
  5. ORAL TREPROSTINIL [Suspect]
     Active Substance: TREPROSTINIL
     Dosage: UNK
     Route: 048
     Dates: start: 20160201
  6. ORAL TREPROSTINIL [Suspect]
     Active Substance: TREPROSTINIL
     Indication: PULMONARY ARTERIAL HYPERTENSION
     Dosage: 9.5 MG, TID
     Route: 048
     Dates: start: 20170302

REACTIONS (3)
  - Cor pulmonale [Recovered/Resolved]
  - Gastrointestinal disorder [Recovered/Resolved]
  - Pulmonary arterial hypertension [Recovered/Resolved]

NARRATIVE: CASE EVENT DATE: 20160424
